FAERS Safety Report 4413478-4 (Version None)
Quarter: 2004Q2

REPORT INFORMATION
  Report Type: 
  Country: None (occurrence: None)
  Receive Date: 20040630
  Receipt Date: 20040426
  Transmission Date: 20050107
  Serious: No
  Sender: FDA-Public Use
  Company Number: 04P-163-0258778-00

PATIENT
  Age: 65 Year
  Sex: Female
  Weight: 63.5036 kg

DRUGS (14)
  1. HUMIRA [Suspect]
     Indication: RHEUMATOID ARTHRITIS
     Dosage: 40 MG, 1 IN 2 WK
     Dates: start: 20031219
  2. MSM [Concomitant]
  3. OSTEOBIFLEX [Concomitant]
  4. PYRIDOXINE HYDROCHLORIDE [Concomitant]
  5. ASCORBIC ACID [Concomitant]
  6. ECHINACEA [Concomitant]
  7. CLARINEX [Concomitant]
  8. METHOTREXATE [Concomitant]
  9. BUCINDOLOL HYDROCHLORIDE [Concomitant]
  10. METHYLPREDNISOLONE [Concomitant]
  11. ALENDRONATE SODIUM [Concomitant]
  12. PROVELLA-14 [Concomitant]
  13. CALCIUM WITH VITAMIN D [Concomitant]
  14. TOCOPHEROL CONCENTRATE CAP [Concomitant]

REACTIONS (1)
  - DRUG INEFFECTIVE [None]
